FAERS Safety Report 12684263 (Version 7)
Quarter: 2019Q2

REPORT INFORMATION
  Report Type: Spontaneous
  Country: US (occurrence: US)
  Receive Date: 20160825
  Receipt Date: 20190429
  Transmission Date: 20190711
  Serious: No
  Sender: FDA-Public Use
  Company Number: US-PFIZER INC-2016273207

PATIENT
  Age: 74 Year
  Sex: Female
  Weight: 63.3 kg

DRUGS (29)
  1. XANAX [Concomitant]
     Active Substance: ALPRAZOLAM
     Indication: SLEEP DISORDER
     Dosage: 0.5 MG, AS NEEDED
     Route: 048
  2. CELLCEPT [Concomitant]
     Active Substance: MYCOPHENOLATE MOFETIL\MYCOPHENOLATE MOFETIL HYDROCHLORIDE
     Dosage: 500 MG, 2X/DAY
     Route: 048
  3. RAPAMUNE [Suspect]
     Active Substance: SIROLIMUS
     Dosage: 0.5 MG, DAILY (TAKE 0.5 MG TAB DAILY)
  4. ECOTRIN [Concomitant]
     Active Substance: ASPIRIN
     Dosage: 81 MG, 1X/DAY
     Route: 048
  5. FIORICET [Concomitant]
     Active Substance: ACETAMINOPHEN\BUTALBITAL\CAFFEINE
     Dosage: 1 DF, UNK
     Route: 048
  6. FLEXERIL [Concomitant]
     Active Substance: CYCLOBENZAPRINE HYDROCHLORIDE
     Indication: MUSCLE SPASMS
     Dosage: 5 MG, AS NEEDED (NIGHTLY)
     Route: 048
  7. RAPAMUNE [Suspect]
     Active Substance: SIROLIMUS
     Dosage: 2 MG, DAILY (TAKE 1 MG TAB - 2 TABS DAILY)
  8. PROTONIX [Concomitant]
     Active Substance: PANTOPRAZOLE SODIUM
     Dosage: 40 MG, 2X/DAY
     Route: 048
  9. RAPAMUNE [Suspect]
     Active Substance: SIROLIMUS
     Indication: IMMUNE SYSTEM DISORDER
     Dosage: 2 MG, 1X/DAY
     Dates: start: 20160514
  10. RAPAMUNE [Suspect]
     Active Substance: SIROLIMUS
     Dosage: 2.5 MG, DAILY (RAPAMUNE 0.5 MG, RAPAMUNE 1 MG (2.5 MG TAB DAILY)
  11. LIDODERM [Concomitant]
     Active Substance: LIDOCAINE
     Dosage: 5 %, 1X/DAY (ON FOR 12 HOURS AFTER APPLYING AND THEN OFF FOR 21 HOURS)
     Route: 003
  12. VITAMIN C WITH ROSE HIPS [Concomitant]
     Dosage: 1000 MG, 1X/DAY
     Route: 048
  13. LISINOPRIL. [Concomitant]
     Active Substance: LISINOPRIL
     Dosage: UNK
  14. RAPAMUNE [Suspect]
     Active Substance: SIROLIMUS
     Dosage: 2 MG, 1X/DAY
     Route: 048
  15. HUMALOG [Concomitant]
     Active Substance: INSULIN LISPRO
     Dosage: 2 IU, UNK
     Route: 058
  16. OSCAL/D [Concomitant]
     Dosage: UNK UNK, DAILY (1,250 MG/ 200 UNIT TABLET)
     Route: 048
  17. LIDODERM [Concomitant]
     Active Substance: LIDOCAINE
     Dosage: 5 %, UNK
     Route: 061
  18. RAPAMUNE [Suspect]
     Active Substance: SIROLIMUS
     Indication: HEART TRANSPLANT REJECTION
     Dosage: 2 MG, DAILY
     Route: 048
     Dates: start: 20160622
  19. RAPAMUNE [Suspect]
     Active Substance: SIROLIMUS
     Dosage: 2.5 MG, DAILY (2 1MG TAB AND 1 0.5MG TAB FOR A TOTAL OF 2.5MG DAILY)
     Route: 048
  20. CRESTOR [Concomitant]
     Active Substance: ROSUVASTATIN CALCIUM
     Dosage: 5 MG, 2X/WEEK
     Route: 048
  21. VAGIFEM [Concomitant]
     Active Substance: ESTRADIOL
     Dosage: 25 MG, 2X/WEEK
     Route: 067
  22. RAPAMUNE [Suspect]
     Active Substance: SIROLIMUS
     Indication: HEART TRANSPLANT
     Dosage: 2 MG, DAILY (EVERY MORNING)
     Route: 048
     Dates: start: 20161122
  23. FIORICET [Concomitant]
     Active Substance: ACETAMINOPHEN\BUTALBITAL\CAFFEINE
     Dosage: 50/325/40, AS NEEDED (OR EVERY 6 HOURS)
     Route: 048
  24. CELEXA [Concomitant]
     Active Substance: CITALOPRAM HYDROBROMIDE
     Dosage: 20 MG, DAILY
     Route: 048
  25. FOLVITE [Concomitant]
     Active Substance: FOLIC ACID
     Dosage: 1 MG, 1X/DAY
     Route: 048
  26. HUMALOG [Concomitant]
     Active Substance: INSULIN LISPRO
     Dosage: 2 DF, 3X/DAY (2 UNITS INTO SKIN 3 TIMES DAILY 30 MINS BEFORE MEALS)
     Route: 058
  27. MAGNESIUM GLUCONATE [Concomitant]
     Active Substance: MAGNESIUM GLUCONATE
     Dosage: 2000 MG, 3X/DAY (27 MG OF ELEM)
     Route: 048
  28. DELTASONE [Concomitant]
     Active Substance: PREDNISONE
     Dosage: 3 MG, DAILY (TAKE 3 MG TOTAL (3 TABLETS) DAILY WITH BREAKFAST)
     Route: 048
  29. ZETIA [Concomitant]
     Active Substance: EZETIMIBE
     Dosage: UNK

REACTIONS (6)
  - Poor quality product administered [Unknown]
  - Product quality issue [Unknown]
  - Product use in unapproved indication [Unknown]
  - Nasopharyngitis [Unknown]
  - Mouth ulceration [Unknown]
  - Swelling face [Recovering/Resolving]

NARRATIVE: CASE EVENT DATE: 201902
